FAERS Safety Report 9551990 (Version 3)
Quarter: 2013Q4

REPORT INFORMATION
  Report Type: Spontaneous
  Country: US (occurrence: None)
  Receive Date: 20130923
  Receipt Date: 20131017
  Transmission Date: 20140711
  Serious: Yes (Death)
  Sender: FDA-Public Use
  Company Number: ACO_37616_2013

PATIENT
  Age: 44 Year
  Sex: Male

DRUGS (2)
  1. AMPYRA [Suspect]
     Indication: GAIT DISTURBANCE
     Dates: start: 201212, end: 2013
  2. TYSABRI (NATALIZUMAB) [Concomitant]

REACTIONS (3)
  - Completed suicide [None]
  - Stress [None]
  - Drug ineffective [None]
